FAERS Safety Report 24597116 (Version 1)
Quarter: 2024Q4

REPORT INFORMATION
  Report Type: Spontaneous
  Country: US (occurrence: US)
  Receive Date: 20241110
  Receipt Date: 20241110
  Transmission Date: 20250115
  Serious: No
  Sender: SANOFI AVENTIS
  Company Number: US-SA-2024SA305428

PATIENT
  Age: 12 Year
  Sex: Female
  Weight: 56.82 kg

DRUGS (1)
  1. DUPIXENT [Suspect]
     Active Substance: DUPILUMAB
     Indication: Illness
     Dosage: 200.000MG QOW
     Route: 058
     Dates: end: 202407

REACTIONS (1)
  - Skin burning sensation [Unknown]

NARRATIVE: CASE EVENT DATE: 20240701
